FAERS Safety Report 7777771-X (Version None)
Quarter: 2011Q3

REPORT INFORMATION
  Report Type: 
  Country: None (occurrence: None)
  Receive Date: 20110926
  Receipt Date: 20110913
  Transmission Date: 20111222
  Serious: Yes (Hospitalization, Other)
  Sender: FDA-Public Use
  Company Number: US-BIOGENIDEC-2011BI035173

PATIENT
  Age: 48 Year
  Sex: Female

DRUGS (3)
  1. MEDICATION (NOS) [Concomitant]
  2. AVONEX [Suspect]
     Indication: MULTIPLE SCLEROSIS
     Route: 030
     Dates: start: 19980630
  3. MAXALT [Concomitant]

REACTIONS (3)
  - MOBILITY DECREASED [None]
  - CONVULSION [None]
  - ADVERSE DRUG REACTION [None]
